FAERS Safety Report 4502017-5 (Version None)
Quarter: 2004Q4

REPORT INFORMATION
  Report Type: 
  Country: None (occurrence: None)
  Receive Date: 20041115
  Receipt Date: 20041115
  Transmission Date: 20050328
  Serious: Yes (Hospitalization)
  Sender: FDA-Public Use
  Company Number: None

PATIENT
  Age: 63 Year
  Sex: Male
  Weight: 64.9 kg

DRUGS (13)
  1. TERAZOSIN HCL [Suspect]
  2. GEMFIBROZIL [Concomitant]
  3. LISINOPRIL [Concomitant]
  4. SPIRONOLACTONE [Concomitant]
  5. IPRATROPIUM/ALBUTEROL INHALER [Concomitant]
  6. FLUNISOLIDE [Concomitant]
  7. SIMVASTATIN [Concomitant]
  8. LUBRIDERM [Concomitant]
  9. FELODIPINE [Concomitant]
  10. LISINOPRIL [Concomitant]
  11. TETANUS + DIPHTHERIA TOXOIDS [Concomitant]
  12. FELODIPINE [Concomitant]
  13. DILTIAZEM [Concomitant]

REACTIONS (1)
  - SYNCOPE [None]
